FAERS Safety Report 20546286 (Version 1)
Quarter: 2022Q1

REPORT INFORMATION
  Report Type: Spontaneous
  Country: PT (occurrence: PT)
  Receive Date: 20220303
  Receipt Date: 20220303
  Transmission Date: 20220423
  Serious: Yes (Hospitalization)
  Sender: FDA-Public Use
  Company Number: PT-MYLANLABS-2022M1016474

PATIENT
  Age: 28 Year
  Sex: Female

DRUGS (1)
  1. DROSPIRENONE\ETHINYL ESTRADIOL [Suspect]
     Active Substance: DROSPIRENONE\ETHINYL ESTRADIOL
     Indication: Contraception
     Dosage: UNK
     Route: 048

REACTIONS (3)
  - Retinal artery occlusion [Recovered/Resolved]
  - Blindness [Recovered/Resolved]
  - Vision blurred [Recovered/Resolved]
